FAERS Safety Report 10227869 (Version 1)
Quarter: 2014Q2

REPORT INFORMATION
  Report Type: Spontaneous
  Country: US (occurrence: US)
  Receive Date: 20140610
  Receipt Date: 20140610
  Transmission Date: 20141212
  Serious: Yes (Other)
  Sender: FDA-Public Use
  Company Number: US-PFIZER INC-2014157406

PATIENT
  Age: 49 Year
  Sex: Female
  Weight: 70.3 kg

DRUGS (8)
  1. XANAX [Suspect]
     Indication: NERVOUS SYSTEM DISORDER
     Dosage: UNK, 2X/DAY
     Route: 048
  2. LIPITOR [Suspect]
     Indication: BLOOD CHOLESTEROL INCREASED
     Dosage: 40 MG, 1X/DAY
     Route: 048
  3. GABAPENTIN [Concomitant]
     Dosage: UNK
  4. NORCO [Concomitant]
     Dosage: UNK, 1X/DAY
  5. AMBIEN [Concomitant]
     Dosage: UNK, 1X/DAY AT BEDTIME
  6. VITAMIN B12 [Concomitant]
     Dosage: UNK
  7. VITAMIN B12 [Concomitant]
     Dosage: UNK, 1X/DAY
  8. PREMARIN [Concomitant]
     Dosage: UNK

REACTIONS (3)
  - Diabetes mellitus [Unknown]
  - Blood pressure abnormal [Unknown]
  - Weight decreased [Unknown]
